FAERS Safety Report 13166684 (Version 1)
Quarter: 2017Q1

REPORT INFORMATION
  Report Type: Report from Study
  Country: US (occurrence: US)
  Receive Date: 20170131
  Receipt Date: 20170131
  Transmission Date: 20170428
  Serious: No
  Sender: FDA-Public Use
  Company Number: US-AMGEN-USASL2017014036

PATIENT
  Sex: Female

DRUGS (1)
  1. ENBREL [Suspect]
     Active Substance: ETANERCEPT
     Indication: RHEUMATOID ARTHRITIS
     Dosage: 50 MG, WEEKLY
     Route: 065

REACTIONS (7)
  - Fatigue [Unknown]
  - Respiratory tract congestion [Unknown]
  - Malaise [Unknown]
  - Activities of daily living impaired [Unknown]
  - Muscle spasms [Unknown]
  - Lethargy [Unknown]
  - Therapy non-responder [Unknown]
